FAERS Safety Report 8204013-3 (Version None)
Quarter: 2012Q1

REPORT INFORMATION
  Report Type: 
  Country: None (occurrence: None)
  Receive Date: 20120313
  Receipt Date: 20120312
  Transmission Date: 20120608
  Serious: No
  Sender: FDA-Public Use
  Company Number: US-PFIZER INC-2012062626

PATIENT
  Sex: Female
  Weight: 63.492 kg

DRUGS (5)
  1. ACETAMINOPHEN [Concomitant]
     Indication: PAIN
  2. CHANTIX [Suspect]
     Indication: SMOKING CESSATION THERAPY
     Dosage: 0.5 MG, DAILY
     Route: 048
     Dates: start: 20120212, end: 20120101
  3. TIMOLOL [Concomitant]
     Indication: CARDIAC MURMUR
     Dosage: 25 MG, DAILY
  4. CHANTIX [Suspect]
     Dosage: 1 MG, 2X/DAY
     Route: 048
     Dates: start: 20120101
  5. ACETAMINOPHEN [Concomitant]
     Indication: KNEE ARTHROPLASTY
     Dosage: 650 MG, AS NEEDED

REACTIONS (1)
  - NAUSEA [None]
